FAERS Safety Report 6233524-5 (Version None)
Quarter: 2009Q2

REPORT INFORMATION
  Report Type: 
  Country: None (occurrence: None)
  Receive Date: 20090615
  Receipt Date: 20090605
  Transmission Date: 20091009
  Serious: Yes (Death)
  Sender: FDA-Public Use
  Company Number: SPV1-2008-01746

PATIENT
  Age: 21 Year
  Sex: Male

DRUGS (1)
  1. ELAPRASE [Suspect]
     Indication: MUCOPOLYSACCHARIDOSIS II
     Dosage: 24 MG, IV DRIP
     Route: 041
     Dates: start: 20061006

REACTIONS (1)
  - CARDIO-RESPIRATORY ARREST [None]
